FAERS Safety Report 6549404-1 (Version None)
Quarter: 2010Q1

REPORT INFORMATION
  Report Type: 
  Country: None (occurrence: None)
  Receive Date: 20100125
  Receipt Date: 20100121
  Transmission Date: 20100710
  Serious: Yes (Death)
  Sender: FDA-Public Use
  Company Number: PHHY2009JP58438

PATIENT
  Sex: Male

DRUGS (2)
  1. TEGRETOL [Suspect]
     Route: 048
  2. TEGRETOL [Suspect]
     Dosage: 100 OR 200 TABLETS AT ONCE
     Route: 048

REACTIONS (2)
  - COMPLETED SUICIDE [None]
  - INTENTIONAL OVERDOSE [None]
